FAERS Safety Report 14100105 (Version 3)
Quarter: 2017Q4

REPORT INFORMATION
  Report Type: Spontaneous
  Country: RO (occurrence: RO)
  Receive Date: 20171017
  Receipt Date: 20171121
  Transmission Date: 20180321
  Serious: Yes (Death, Hospitalization)
  Sender: FDA-Public Use
  Company Number: RO-GILEAD-2017-0299233

PATIENT
  Age: 56 Year
  Sex: Male
  Weight: 80 kg

DRUGS (7)
  1. HARVONI [Suspect]
     Active Substance: LEDIPASVIR\SOFOSBUVIR
     Indication: HEPATITIS C
     Dosage: 1 DF, UNK
     Route: 048
  2. PROPRANOLOL [Concomitant]
     Active Substance: PROPRANOLOL HYDROCHLORIDE
  3. RIBAVIRINA [Concomitant]
     Active Substance: RIBAVIRIN
     Indication: HEPATITIS C
     Dosage: 1000 MG, UNK
     Route: 048
  4. TROMBOSTOP [Concomitant]
     Active Substance: ACENOCOUMAROL
  5. VEROSPIRON [Concomitant]
     Active Substance: SPIRONOLACTONE
  6. NORMIX [Concomitant]
     Active Substance: RIFAXIMIN
  7. FUROSEMID                          /00032601/ [Concomitant]
     Active Substance: FUROSEMIDE

REACTIONS (3)
  - Dyspnoea [Fatal]
  - Oedema peripheral [Fatal]
  - Pyrexia [Fatal]
